FAERS Safety Report 24399190 (Version 1)
Quarter: 2024Q4

REPORT INFORMATION
  Report Type: Spontaneous
  Country: JP (occurrence: JP)
  Receive Date: 20241004
  Receipt Date: 20241004
  Transmission Date: 20250114
  Serious: Yes (Hospitalization, Other)
  Sender: MERCK
  Company Number: JP-009507513-2410JPN000694

PATIENT
  Age: 54 Year
  Sex: Male

DRUGS (3)
  1. PEMBROLIZUMAB [Suspect]
     Active Substance: PEMBROLIZUMAB
     Indication: Squamous cell carcinoma
     Dosage: UNK
  2. CETUXIMAB [Suspect]
     Active Substance: CETUXIMAB
     Indication: Squamous cell carcinoma
  3. PACLITAXEL [Suspect]
     Active Substance: PACLITAXEL
     Indication: Squamous cell carcinoma

REACTIONS (2)
  - Immune-mediated neuropathy [Recovered/Resolved]
  - Neuronal neuropathy [Recovered/Resolved]
